FAERS Safety Report 4579438-8 (Version None)
Quarter: 2005Q1

REPORT INFORMATION
  Report Type: 
  Country: None (occurrence: None)
  Receive Date: 20050210
  Receipt Date: 20050210
  Transmission Date: 20050727
  Serious: Yes (Death)
  Sender: FDA-Public Use
  Company Number: None

PATIENT
  Sex: Female
  Weight: 92 kg

DRUGS (2)
  1. DAUNOMYCIN [Suspect]
     Dosage: 89.5 MG OVER 24 HOURS ON DAYS 1-3
     Dates: start: 20030103, end: 20030105
  2. CYTARABINE [Suspect]
     Dosage: 398 MG IV OVER 24 HOURS DAYS 1-7
     Route: 042
     Dates: start: 20030103, end: 20030110

REACTIONS (3)
  - BLOOD CULTURE POSITIVE [None]
  - ESCHERICHIA INFECTION [None]
  - NEUTROPENIA [None]
